FAERS Safety Report 8341033-2 (Version None)
Quarter: 2012Q2

REPORT INFORMATION
  Report Type: 
  Country: None (occurrence: None)
  Receive Date: 20120507
  Receipt Date: 20120426
  Transmission Date: 20120825
  Serious: Yes (Other)
  Sender: FDA-Public Use
  Company Number: BR-ASTRAZENECA-2012SE27641

PATIENT
  Age: 39 Year
  Sex: Male

DRUGS (3)
  1. NEXIUM [Suspect]
     Route: 048
  2. NEXIUM [Suspect]
     Dosage: 80 MG BY MORNING AND 60 MG AT NIGHT
     Route: 048
  3. NEXIUM [Suspect]
     Route: 048

REACTIONS (2)
  - PRECANCEROUS CELLS PRESENT [None]
  - INTENTIONAL DRUG MISUSE [None]
